FAERS Safety Report 4686266-1 (Version None)
Quarter: 2005Q2

REPORT INFORMATION
  Report Type: 
  Country: None (occurrence: None)
  Receive Date: 20050606
  Receipt Date: 20050523
  Transmission Date: 20051028
  Serious: Yes (Hospitalization, Other)
  Sender: FDA-Public Use
  Company Number: 198321

PATIENT
  Age: 51 Year
  Sex: Female
  Weight: 79.3795 kg

DRUGS (9)
  1. AVONEX [Suspect]
     Indication: MULTIPLE SCLEROSIS
     Dosage: SEE IMAGE
     Route: 030
     Dates: end: 20040301
  2. AVONEX [Suspect]
     Indication: MULTIPLE SCLEROSIS
     Dosage: SEE IMAGE
     Route: 030
     Dates: start: 20000101
  3. PAXIL [Concomitant]
  4. XANAX [Concomitant]
  5. LASIX [Concomitant]
  6. NEURONTIN [Concomitant]
  7. MULTI-VITAMIN [Concomitant]
  8. PAMELOR [Concomitant]
  9. PREMPRO [Concomitant]

REACTIONS (15)
  - ARTHROPATHY [None]
  - BLOOD CHOLESTEROL INCREASED [None]
  - BRONCHOPNEUMONIA [None]
  - COGNITIVE DISORDER [None]
  - CYANOSIS [None]
  - DRY MOUTH [None]
  - HEPATIC STEATOSIS [None]
  - HEPATITIS [None]
  - HEPATOMEGALY [None]
  - LIVEDO RETICULARIS [None]
  - MULTIPLE SCLEROSIS [None]
  - PAIN IN EXTREMITY [None]
  - PERIPHERAL COLDNESS [None]
  - PROGRESSIVE MULTIPLE SCLEROSIS [None]
  - STRESS [None]
